FAERS Safety Report 16969081 (Version 2)
Quarter: 2019Q4

REPORT INFORMATION
  Report Type: Spontaneous
  Country: HR (occurrence: HR)
  Receive Date: 20191029
  Receipt Date: 20191106
  Transmission Date: 20200122
  Serious: Yes (Hospitalization)
  Sender: FDA-Public Use
  Company Number: HR-TEVA-2019-HR-1128334

PATIENT
  Age: 60 Year
  Sex: Female

DRUGS (7)
  1. HELEX [Concomitant]
     Active Substance: ALPRAZOLAM
     Dosage: 0.5 MG PER DAY
     Route: 048
  2. ZIPANTOLA [Concomitant]
     Active Substance: PANTOPRAZOLE SODIUM
     Dosage: 40 MG PER DAY
     Route: 048
  3. KLAVOCIN [Suspect]
     Active Substance: AMOXICILLIN\CLAVULANIC ACID
     Indication: DENTAL OPERATION
     Dosage: 2000 MG
     Route: 048
     Dates: start: 20190620, end: 20190707
  4. INFLECTRA [Interacting]
     Active Substance: INFLIXIMAB-DYYB
     Indication: PSORIASIS
     Dosage: 300 MG
     Route: 065
     Dates: start: 20160405, end: 20190613
  5. FOLACIN [Concomitant]
     Dosage: 5 MG PER WEEK
     Route: 048
  6. CONCOR [Concomitant]
     Active Substance: BISOPROLOL FUMARATE
     Dosage: 7.5 MG PER ONE DAY
     Route: 048
  7. METHOTREXATE. [Suspect]
     Active Substance: METHOTREXATE
     Indication: PSORIASIS
     Dosage: 12.5 MG PER WEEK
     Route: 065

REACTIONS (19)
  - Thrombocytopenia [Recovered/Resolved]
  - Pneumonia [Recovered/Resolved]
  - Drug-induced liver injury [Recovered/Resolved]
  - Nausea [Recovered/Resolved]
  - Acute kidney injury [Recovered/Resolved]
  - Anaemia [Recovered/Resolved]
  - Drug hypersensitivity [Recovered/Resolved]
  - Cardiac failure acute [Recovered/Resolved]
  - Erythema [Recovered/Resolved]
  - Hypoalbuminaemia [Recovered/Resolved]
  - Drug interaction [Recovered/Resolved]
  - Hepatic lesion [Recovered/Resolved]
  - Asthenia [Recovered/Resolved]
  - Toxicity to various agents [Recovered/Resolved]
  - Secondary immunodeficiency [Recovered/Resolved]
  - Acute generalised exanthematous pustulosis [Recovered/Resolved]
  - Vomiting [Recovered/Resolved]
  - Drug hypersensitivity [Recovered/Resolved]
  - Sepsis syndrome [Recovered/Resolved]

NARRATIVE: CASE EVENT DATE: 201907
